FAERS Safety Report 4838629-9 (Version None)
Quarter: 2005Q4

REPORT INFORMATION
  Report Type: 
  Country: None (occurrence: None)
  Receive Date: 20051129
  Receipt Date: 20050803
  Transmission Date: 20060501
  Serious: No
  Sender: FDA-Public Use
  Company Number: US-GLAXOSMITHKLINE-A0568761A

PATIENT
  Age: 37 Year
  Sex: Female

DRUGS (1)
  1. COMMIT [Suspect]
     Dates: start: 20050718, end: 20050801

REACTIONS (2)
  - NAUSEA [None]
  - STOMACH DISCOMFORT [None]
